FAERS Safety Report 16384204 (Version 1)
Quarter: 2019Q3

REPORT INFORMATION
  Report Type: Spontaneous
  Country: US (occurrence: US)
  Receive Date: 20190531
  Receipt Date: 20190531
  Transmission Date: 20191004
  Serious: Yes (Hospitalization)
  Sender: FDA-Public Use
  Company Number: None

PATIENT
  Age: 74 Year
  Sex: Female

DRUGS (4)
  1. XEOMIN [Suspect]
     Active Substance: INCOBOTULINUMTOXINA
     Indication: DYSTONIA
     Dosage: ?          OTHER FREQUENCY:Q3MONTHS;?
     Route: 030
     Dates: start: 20170712
  2. XEOMIN [Suspect]
     Active Substance: INCOBOTULINUMTOXINA
     Indication: MUSCLE SPASMS
     Dosage: ?          OTHER FREQUENCY:Q3MONTHS;?
     Route: 030
     Dates: start: 20170712
  3. XEOMIN [Suspect]
     Active Substance: INCOBOTULINUMTOXINA
     Indication: DYSTONIA
     Dosage: ?          OTHER FREQUENCY:Q3MONTHS;?
     Route: 030
     Dates: start: 20170712
  4. XEOMIN [Suspect]
     Active Substance: INCOBOTULINUMTOXINA
     Indication: MUSCLE SPASMS
     Dosage: ?          OTHER FREQUENCY:Q3MONTHS;?
     Route: 030
     Dates: start: 20170712

REACTIONS (2)
  - Urinary tract infection [None]
  - Pneumonia [None]

NARRATIVE: CASE EVENT DATE: 20190528
